FAERS Safety Report 8068694-X (Version None)
Quarter: 2012Q1

REPORT INFORMATION
  Report Type: 
  Country: None (occurrence: None)
  Receive Date: 20120124
  Receipt Date: 20110808
  Transmission Date: 20120608
  Serious: Yes (Hospitalization)
  Sender: FDA-Public Use
  Company Number: GB-BAXTER-2011BH025727

PATIENT
  Sex: Male

DRUGS (8)
  1. DIANEAL [Suspect]
     Route: 033
     Dates: start: 20101201
  2. DIANEAL [Suspect]
     Route: 033
     Dates: start: 20100701, end: 20101201
  3. EXTRANEAL [Suspect]
     Route: 033
     Dates: start: 20101201
  4. EXTRANEAL [Suspect]
     Route: 033
     Dates: start: 20100701, end: 20101201
  5. DIANEAL [Suspect]
     Route: 033
     Dates: start: 20101201
  6. DIANEAL [Suspect]
     Indication: PERITONEAL DIALYSIS
     Route: 033
     Dates: start: 20100701, end: 20101201
  7. EXTRANEAL [Suspect]
     Indication: PERITONEAL DIALYSIS
     Route: 033
     Dates: start: 20100701, end: 20101201
  8. EXTRANEAL [Suspect]
     Route: 033
     Dates: start: 20101201

REACTIONS (1)
  - CARDIAC DISORDER [None]
